FAERS Safety Report 7229729-7 (Version None)
Quarter: 2011Q1

REPORT INFORMATION
  Report Type: 
  Country: None (occurrence: None)
  Receive Date: 20110117
  Receipt Date: 20110114
  Transmission Date: 20110831
  Serious: Yes (Hospitalization, Other)
  Sender: FDA-Public Use
  Company Number: DE-ABBOTT-06P-062-0342033-00

PATIENT
  Sex: Female
  Weight: 79 kg

DRUGS (14)
  1. HUMIRA [Suspect]
     Route: 058
     Dates: start: 20070101, end: 20070801
  2. LANTAREL [Suspect]
     Route: 048
     Dates: start: 20070101, end: 20070801
  3. LANTAREL [Suspect]
     Indication: RHEUMATOID ARTHRITIS
     Dosage: DOSE 20
     Route: 048
     Dates: start: 20000101, end: 20060701
  4. FENTANYL [Concomitant]
     Indication: RHEUMATOID ARTHRITIS
     Dosage: PER HOUR
     Dates: start: 20090801
  5. METHOTREXATE [Concomitant]
     Indication: RHEUMATOID ARTHRITIS
     Route: 058
     Dates: start: 20000101
  6. HUMIRA [Suspect]
     Route: 058
     Dates: start: 20071113
  7. VALORON [Concomitant]
     Indication: PRODUCT USED FOR UNKNOWN INDICATION
  8. PREDNISOLONE [Concomitant]
     Route: 048
     Dates: start: 19980101
  9. PREDNISOLONE [Concomitant]
     Dates: start: 20000101
  10. FOLIC ACID [Concomitant]
     Indication: PRODUCT USED FOR UNKNOWN INDICATION
     Dates: start: 20010801, end: 20060701
  11. HUMIRA [Suspect]
     Indication: RHEUMATOID ARTHRITIS
     Route: 058
     Dates: start: 20060101, end: 20060701
  12. LANTAREL [Suspect]
     Route: 048
     Dates: start: 20071101
  13. PREDNISOLONE [Concomitant]
     Indication: RHEUMATOID ARTHRITIS
     Route: 048
     Dates: start: 20010801
  14. PRESOMEN [Concomitant]
     Indication: PRODUCT USED FOR UNKNOWN INDICATION

REACTIONS (8)
  - BREAST CANCER [None]
  - DEPRESSION [None]
  - HEPATIC ENZYME INCREASED [None]
  - BRONCHITIS [None]
  - ARTHROSCOPY [None]
  - IMPAIRED HEALING [None]
  - INCONTINENCE [None]
  - BREAST RECONSTRUCTION [None]
